FAERS Safety Report 6860375-0 (Version None)
Quarter: 2010Q2

REPORT INFORMATION
  Report Type: 
  Country: None (occurrence: None)
  Receive Date: 20100528
  Receipt Date: 20091104
  Transmission Date: 20101027
  Serious: Yes (Other)
  Sender: FDA-Public Use
  Company Number: CIP09003117

PATIENT
  Age: 63 Year
  Sex: Female
  Weight: 63.2 kg

DRUGS (3)
  1. ACTONEL [Suspect]
     Dosage: 35 MG ONCE WEEKLY, ORAL
     Route: 048
     Dates: start: 20060101
  2. FOSAMAX [Suspect]
     Indication: OSTEOPENIA
     Dosage: 70 MG ONCE WEEKLY, ORAL
     Route: 048
     Dates: start: 20030303, end: 20060101
  3. CALCIUM (CALCIUM) [Concomitant]

REACTIONS (10)
  - BONE DENSITY DECREASED [None]
  - DENTAL CARIES [None]
  - EXOSTOSIS [None]
  - GINGIVAL INFECTION [None]
  - GINGIVAL SWELLING [None]
  - GINGIVITIS ULCERATIVE [None]
  - JAW DISORDER [None]
  - LOOSE TOOTH [None]
  - OSTEONECROSIS [None]
  - PRIMARY SEQUESTRUM [None]
